FAERS Safety Report 9965226 (Version 1)
Quarter: 2014Q1

REPORT INFORMATION
  Report Type: Report from Study
  Country: US (occurrence: US)
  Receive Date: 20140305
  Receipt Date: 20140305
  Transmission Date: 20141002
  Serious: No
  Sender: FDA-Public Use
  Company Number: US-ABBVIE-13P-163-1128877-00

PATIENT
  Age: 61 Year
  Sex: Female

DRUGS (10)
  1. HUMIRA [Suspect]
     Indication: RHEUMATOID ARTHRITIS
     Route: 058
     Dates: start: 20130728
  2. COPAXONE [Concomitant]
     Indication: MULTIPLE SCLEROSIS
     Route: 050
  3. WARFARIN [Concomitant]
     Indication: FACTOR V LEIDEN MUTATION
     Dosage: 8-10 MG ONCE A DAY
  4. PERCOCET [Concomitant]
     Indication: PAIN
  5. SAVELLA [Concomitant]
     Indication: FIBROMYALGIA
  6. CLONAZEPAM [Concomitant]
     Indication: RESTLESS LEGS SYNDROME
  7. ATRAZINE/HCTZ [Concomitant]
     Indication: OEDEMA
     Dosage: 37.5/2.5MG
  8. HYDROCHLOROTHIAZIDE [Concomitant]
     Indication: OEDEMA
  9. AMRIX [Concomitant]
     Indication: PAIN
  10. TRIAZOLAM [Concomitant]
     Indication: INSOMNIA

REACTIONS (5)
  - Oropharyngeal pain [Recovered/Resolved]
  - Influenza like illness [Recovered/Resolved]
  - Pain [Recovered/Resolved]
  - Sluggishness [Recovered/Resolved]
  - Headache [Recovered/Resolved]
